FAERS Safety Report 6759782-6 (Version None)
Quarter: 2010Q2

REPORT INFORMATION
  Report Type: 
  Country: None (occurrence: None)
  Receive Date: 20100604
  Receipt Date: 20100520
  Transmission Date: 20101027
  Serious: Yes (Hospitalization, Other)
  Sender: FDA-Public Use
  Company Number: 2010002022

PATIENT
  Sex: Male

DRUGS (2)
  1. TARCEVA [Suspect]
     Indication: BILE DUCT CANCER
     Dosage: 150 MG, Q2W, ORAL
     Route: 048
     Dates: start: 20100323, end: 20100409
  2. AVASTIN [Suspect]
     Indication: BILE DUCT CANCER
     Dosage: 886 MG, Q2W, INTRAVENOUS
     Route: 042
     Dates: start: 20100323, end: 20100409

REACTIONS (3)
  - GASTRIC VARICES [None]
  - OESOPHAGEAL VARICES HAEMORRHAGE [None]
  - UPPER GASTROINTESTINAL HAEMORRHAGE [None]
